FAERS Safety Report 8115335-9 (Version None)
Quarter: 2012Q1

REPORT INFORMATION
  Report Type: 
  Country: None (occurrence: None)
  Receive Date: 20120206
  Receipt Date: 20120206
  Transmission Date: 20120608
  Serious: Yes (Hospitalization)
  Sender: FDA-Public Use
  Company Number: None

PATIENT
  Sex: Female
  Weight: 2.2679 kg

DRUGS (1)
  1. NIFEDIPINE [Suspect]
     Indication: HYPERTENSION
     Dosage: 20.0 MG
     Route: 048
     Dates: start: 20110601, end: 20120203

REACTIONS (2)
  - EPILEPSY [None]
  - MATERNAL DRUGS AFFECTING FOETUS [None]
